FAERS Safety Report 18935102 (Version 2)
Quarter: 2022Q1

REPORT INFORMATION
  Report Type: Spontaneous
  Country: US (occurrence: US)
  Receive Date: 20210224
  Receipt Date: 20220120
  Transmission Date: 20220424
  Serious: No
  Sender: FDA-Public Use
  Company Number: US-TERSERA THERAPEUTICS LLC-2020TRS000741

PATIENT

DRUGS (5)
  1. PRIALT [Suspect]
     Active Substance: ZICONOTIDE ACETATE
     Indication: Product used for unknown indication
     Dosage: 1.992 MCG, QD (3.3 MCG)
     Route: 037
  2. PRIALT [Suspect]
     Active Substance: ZICONOTIDE ACETATE
     Dosage: 1.410 MCG, QD (3.3 MCG)
     Route: 037
  3. PRIALT [Suspect]
     Active Substance: ZICONOTIDE ACETATE
     Dosage: UNK
     Route: 037
  4. BACLOFEN [Suspect]
     Active Substance: BACLOFEN
     Indication: Product used for unknown indication
     Dosage: 854.718 MCG, QD
     Route: 037
  5. BACLOFEN [Suspect]
     Active Substance: BACLOFEN
     Dosage: UNK
     Route: 037

REACTIONS (7)
  - Hypotonia [Recovered/Resolved]
  - Muscle spasticity [Recovered/Resolved]
  - Crying [Recovered/Resolved]
  - Pain [Recovered/Resolved]
  - Somnolence [Unknown]
  - Therapeutic product effect decreased [Recovered/Resolved]
  - Off label use [Recovered/Resolved]
